FAERS Safety Report 11842513 (Version 2)
Quarter: 2016Q1

REPORT INFORMATION
  Report Type: Report from Study
  Country: US (occurrence: US)
  Receive Date: 20151216
  Receipt Date: 20160118
  Transmission Date: 20160526
  Serious: No
  Sender: FDA-Public Use
  Company Number: PHEH2015US026133

PATIENT
  Age: 5 Year
  Sex: Female

DRUGS (1)
  1. ILARIS [Suspect]
     Active Substance: CANAKINUMAB
     Indication: JUVENILE IDIOPATHIC ARTHRITIS
     Dosage: 75 MG, QMO
     Route: 058
     Dates: start: 20151107

REACTIONS (2)
  - Inappropriate schedule of drug administration [Unknown]
  - Pyrexia [Unknown]

NARRATIVE: CASE EVENT DATE: 20151209
